FAERS Safety Report 12083203 (Version 1)
Quarter: 2016Q1

REPORT INFORMATION
  Report Type: Spontaneous
  Country: US (occurrence: None)
  Receive Date: 20160216
  Receipt Date: 20160216
  Transmission Date: 20160526
  Serious: No
  Sender: FDA-Public Use
  Company Number: None

PATIENT
  Age: 49 Year
  Sex: Female
  Weight: 70.31 kg

DRUGS (1)
  1. ZYCLARA [Suspect]
     Active Substance: IMIQUIMOD
     Indication: HYPERKERATOSIS
     Dosage: APPLY ONCE AT NIGHT EVERY NIGHT ONCE DAILY APPLIED TO A SURFACE, USUALLY THE SKIN
     Route: 061
     Dates: start: 20160205, end: 20160211

REACTIONS (3)
  - Palpitations [None]
  - Extrasystoles [None]
  - Dyspnoea [None]

NARRATIVE: CASE EVENT DATE: 20160207
